FAERS Safety Report 20329396 (Version 1)
Quarter: 2022Q1

REPORT INFORMATION
  Report Type: Spontaneous
  Country: ES (occurrence: ES)
  Receive Date: 20220112
  Receipt Date: 20220112
  Transmission Date: 20220424
  Serious: Yes (Death, Hospitalization)
  Sender: FDA-Public Use
  Company Number: ES-CELGENE-ESP-20211206341

PATIENT
  Age: 76 Year
  Sex: Male
  Weight: 54.4 kg

DRUGS (4)
  1. AZACITIDINE [Suspect]
     Active Substance: AZACITIDINE
     Indication: Acute myeloid leukaemia
     Dosage: 77 MILLIGRAM
     Route: 058
     Dates: start: 20210712
  2. REQUIP PROLIB [Concomitant]
     Indication: Parkinson^s disease
     Dosage: UNK
     Route: 065
     Dates: start: 20211020, end: 20211223
  3. LYRICA [Concomitant]
     Active Substance: PREGABALIN
     Indication: Prophylaxis
     Dosage: UNK
     Route: 065
     Dates: start: 20210719, end: 20211223
  4. MAYGACE [Concomitant]
     Indication: Prophylaxis
     Dosage: UNK
     Route: 065
     Dates: start: 20210816, end: 20211223

REACTIONS (2)
  - Acute myeloid leukaemia [Fatal]
  - Subclavian vein thrombosis [Not Recovered/Not Resolved]

NARRATIVE: CASE EVENT DATE: 20211210
